FAERS Safety Report 5608602-1 (Version None)
Quarter: 2008Q1

REPORT INFORMATION
  Report Type: 
  Country: None (occurrence: None)
  Receive Date: 20080111
  Receipt Date: 20070207
  Transmission Date: 20080703
  Serious: Yes (Hospitalization, Other)
  Sender: FDA-Public Use
  Company Number: HQWYE092308FEB07

PATIENT
  Age: 59 Year
  Sex: Female

DRUGS (3)
  1. PREMPRO [Suspect]
     Dosage: ^THE HIGHEST DOSE^, THEN ^THE LOWEST DOSE^, ORAL
     Route: 048
     Dates: start: 19900201
  2. PROZAC [Concomitant]
  3. ACIPHEX [Concomitant]

REACTIONS (1)
  - BREAST CANCER [None]
